FAERS Safety Report 11805793 (Version 1)
Quarter: 2015Q4

REPORT INFORMATION
  Report Type: Spontaneous
  Country: US (occurrence: None)
  Receive Date: 20151204
  Receipt Date: 20151204
  Transmission Date: 20160305
  Serious: No
  Sender: FDA-Public Use
  Company Number: None

PATIENT
  Age: 6 Year
  Sex: Male
  Weight: 24.95 kg

DRUGS (4)
  1. CYCLOPENTOLATE [Suspect]
     Active Substance: CYCLOPENTOLATE
     Indication: PUPIL DILATION PROCEDURE
     Dates: start: 20151201, end: 20151203
  2. KIDS CALCIUM [Concomitant]
  3. KIDS MULTIVITAMIN [Concomitant]
  4. KIDS OMEGA 3 [Concomitant]

REACTIONS (6)
  - Eye irritation [None]
  - Somnolence [None]
  - Panic reaction [None]
  - Screaming [None]
  - Memory impairment [None]
  - Disorientation [None]

NARRATIVE: CASE EVENT DATE: 20151202
